FAERS Safety Report 20165840 (Version 4)
Quarter: 2022Q1

REPORT INFORMATION
  Report Type: Report from Study
  Country: CA (occurrence: CA)
  Receive Date: 20211209
  Receipt Date: 20220207
  Transmission Date: 20220424
  Serious: Yes (Other)
  Sender: FDA-Public Use
  Company Number: CA-UCBSA-2021056274

PATIENT
  Age: 57 Year
  Sex: Female

DRUGS (2)
  1. CERTOLIZUMAB PEGOL [Suspect]
     Active Substance: CERTOLIZUMAB PEGOL
     Indication: Rheumatoid arthritis
     Dosage: 400 MILLIGRAM, EV 4 WEEKS
     Route: 058
     Dates: start: 20210922, end: 2021
  2. CERTOLIZUMAB PEGOL [Suspect]
     Active Substance: CERTOLIZUMAB PEGOL
     Dosage: 200 MILLIGRAM, EV 2 WEEKS(QOW)
     Route: 058
     Dates: start: 2021

REACTIONS (8)
  - Skin cancer [Unknown]
  - Skin lesion [Recovering/Resolving]
  - Dry skin [Unknown]
  - Pain [Unknown]
  - Drug ineffective [Unknown]
  - Product use issue [Unknown]
  - Back pain [Unknown]
  - Chronic sinusitis [Unknown]

NARRATIVE: CASE EVENT DATE: 20210922
